FAERS Safety Report 12561237 (Version 1)
Quarter: 2016Q3

REPORT INFORMATION
  Report Type: Spontaneous
  Country: US (occurrence: US)
  Receive Date: 20160715
  Receipt Date: 20160715
  Transmission Date: 20161109
  Serious: No
  Sender: FDA-Public Use
  Company Number: US-TARO-2016TAR00072

PATIENT
  Sex: Male
  Weight: 90.7 kg

DRUGS (1)
  1. ACETAZOLAMIDE TABLETS 125 MG [Suspect]
     Active Substance: ACETAZOLAMIDE
     Indication: HYPOBARISM
     Dosage: 125 MG, 2X/DAY
     Route: 048
     Dates: start: 20160114, end: 20160116

REACTIONS (2)
  - Paraesthesia [Recovered/Resolved]
  - Ocular discomfort [Not Recovered/Not Resolved]

NARRATIVE: CASE EVENT DATE: 20160115
